FAERS Safety Report 7545951-4 (Version None)
Quarter: 2011Q2

REPORT INFORMATION
  Report Type: 
  Country: None (occurrence: None)
  Receive Date: 20110614
  Receipt Date: 20110601
  Transmission Date: 20111010
  Serious: Yes (Other)
  Sender: FDA-Public Use
  Company Number: PHHY2011BR48049

PATIENT

DRUGS (1)
  1. ZOLEDRONIC ACID [Suspect]
     Indication: OSTEOPOROSIS
     Dosage: 5 MG, PER 100 ML
     Dates: start: 20110517

REACTIONS (4)
  - PYREXIA [None]
  - ARTHRITIS [None]
  - BEDRIDDEN [None]
  - ARTHROPATHY [None]
